FAERS Safety Report 6272367-3 (Version None)
Quarter: 2009Q3

REPORT INFORMATION
  Report Type: 
  Country: None (occurrence: None)
  Receive Date: 20090713
  Receipt Date: 20090121
  Transmission Date: 20100115
  Serious: No
  Sender: FDA-Public Use
  Company Number: 2009BM000009

PATIENT
  Age: 10 Year
  Sex: Female
  Weight: 35.4 kg

DRUGS (1)
  1. KUVAN [Suspect]
     Indication: PHENYLKETONURIA
     Dosage: 700 MG; QD; PO
     Route: 048
     Dates: start: 20090117, end: 20090212

REACTIONS (2)
  - COUGH [None]
  - HEADACHE [None]
